FAERS Safety Report 7054697-0 (Version None)
Quarter: 2010Q4

REPORT INFORMATION
  Report Type: 
  Country: None (occurrence: None)
  Receive Date: 20101020
  Receipt Date: 20101013
  Transmission Date: 20110411
  Serious: Yes (Other)
  Sender: FDA-Public Use
  Company Number: JP-B.I. PHARMACEUTICALS,INC./RIDGEFIELD-2010-DE-05711GD

PATIENT
  Age: 83 Year
  Sex: Male

DRUGS (1)
  1. MELOXICAM [Suspect]

REACTIONS (2)
  - DUODENAL FISTULA [None]
  - DUODENAL ULCER [None]
